FAERS Safety Report 11311217 (Version 2)
Quarter: 2015Q3

REPORT INFORMATION
  Report Type: Spontaneous
  Country: US (occurrence: US)
  Receive Date: 20150727
  Receipt Date: 20150821
  Transmission Date: 20151125
  Serious: No
  Sender: FDA-Public Use
  Company Number: US-AMGEN-USASP2015072833

PATIENT
  Age: 70 Year
  Sex: Female
  Weight: 60.77 kg

DRUGS (6)
  1. OMEPRAZOLE. [Concomitant]
     Active Substance: OMEPRAZOLE
     Dosage: ONE CAPSULE IN AM  BEFORE BREAKFAST
     Dates: start: 20150527
  2. CLARITIN [Concomitant]
     Active Substance: LORATADINE
     Dosage: 1 OR 2 AS NEEDED.
     Dates: start: 20140512
  3. LORATADINE. [Concomitant]
     Active Substance: LORATADINE
     Dosage: 10 MG, AS NECESSARY
     Route: 048
     Dates: start: 20140512
  4. NABUMETONE. [Concomitant]
     Active Substance: NABUMETONE
     Dosage: 500 MG, (TWO TABLETS DAILY WITH FOOD)
     Dates: start: 20150527
  5. ENBREL [Suspect]
     Active Substance: ETANERCEPT
     Indication: RHEUMATOID ARTHRITIS
     Dosage: 50 MG, QWK
     Route: 058
     Dates: start: 20140527
  6. HYDROXYCHLOROQUINE SULFATE. [Concomitant]
     Active Substance: HYDROXYCHLOROQUINE SULFATE
     Dosage: 200 MG, BID
     Route: 048
     Dates: start: 20150527

REACTIONS (4)
  - Back pain [Unknown]
  - Injection site pain [Not Recovered/Not Resolved]
  - Inappropriate schedule of drug administration [Unknown]
  - Dysuria [Unknown]

NARRATIVE: CASE EVENT DATE: 201406
